FAERS Safety Report 5684181-8 (Version None)
Quarter: 2008Q1

REPORT INFORMATION
  Report Type: 
  Country: None (occurrence: None)
  Receive Date: 20080328
  Receipt Date: 20070910
  Transmission Date: 20080703
  Serious: No
  Sender: FDA-Public Use
  Company Number: US-AMGEN-US242510

PATIENT
  Sex: Female
  Weight: 78 kg

DRUGS (6)
  1. NEULASTA [Suspect]
     Indication: CHEMOTHERAPY
     Route: 058
     Dates: start: 20070831, end: 20070905
  2. TAXOTERE [Concomitant]
     Route: 065
     Dates: start: 20070830
  3. DECADRON [Concomitant]
     Route: 065
     Dates: start: 20070829
  4. ALOXI [Concomitant]
     Route: 065
     Dates: start: 20070829
  5. ADRIAMYCIN PFS [Concomitant]
     Route: 065
  6. CYTOXAN [Concomitant]
     Route: 065

REACTIONS (7)
  - BONE PAIN [None]
  - FACE OEDEMA [None]
  - MUSCLE TIGHTNESS [None]
  - NON-CARDIAC CHEST PAIN [None]
  - PRURITUS [None]
  - RASH [None]
  - SWOLLEN TONGUE [None]
